FAERS Safety Report 12837111 (Version 1)
Quarter: 2016Q4

REPORT INFORMATION
  Report Type: Spontaneous
  Country: DE (occurrence: DE)
  Receive Date: 20161011
  Receipt Date: 20161011
  Transmission Date: 20170207
  Serious: Yes (Other)
  Sender: FDA-Public Use
  Company Number: GXKR2016DE004683

PATIENT
  Age: 3 Year
  Sex: Male
  Weight: 15.9 kg

DRUGS (4)
  1. MERONEM [Concomitant]
     Active Substance: MEROPENEM
     Indication: PNEUMONIA
  2. AMOXICILLIN. [Concomitant]
     Active Substance: AMOXICILLIN
     Indication: PNEUMONIA
  3. CIPROFLOXACIN. [Suspect]
     Active Substance: CIPROFLOXACIN
     Indication: PNEUMONIA
     Dosage: UNK UKN, UNK
     Route: 065
  4. TEICOPLANIN [Suspect]
     Active Substance: TEICOPLANIN
     Indication: PNEUMONIA
     Dosage: UNK UKN, UNK
     Route: 065

REACTIONS (5)
  - Transaminases increased [Unknown]
  - Cholangitis [Unknown]
  - Pancreatitis [Unknown]
  - Hepatitis [Unknown]
  - Total bile acids increased [Unknown]
